FAERS Safety Report 9543390 (Version 1)
Quarter: 2013Q3

REPORT INFORMATION
  Report Type: Spontaneous
  Country: CN (occurrence: CN)
  Receive Date: 20130923
  Receipt Date: 20130923
  Transmission Date: 20140515
  Serious: Yes (Other)
  Sender: FDA-Public Use
  Company Number: CN-PFIZER INC-2013272725

PATIENT
  Sex: Female

DRUGS (1)
  1. EFEXOR XR [Suspect]
     Dosage: UNK
     Route: 048

REACTIONS (3)
  - Cognitive disorder [Unknown]
  - Sluggishness [Unknown]
  - Language disorder [Unknown]
